FAERS Safety Report 21821745 (Version 1)
Quarter: 2023Q1

REPORT INFORMATION
  Report Type: Spontaneous
  Country: US (occurrence: US)
  Receive Date: 20230105
  Receipt Date: 20230105
  Transmission Date: 20230418
  Serious: No
  Sender: FDA-Public Use
  Company Number: US-STRIDES ARCOLAB LIMITED-2022SP014167

PATIENT
  Age: 6 Decade
  Sex: Female

DRUGS (20)
  1. DOXYCYCLINE [Suspect]
     Active Substance: DOXYCYCLINE
     Indication: Lyme disease
     Dosage: UNK
     Route: 065
  2. DOXYCYCLINE [Suspect]
     Active Substance: DOXYCYCLINE
     Dosage: 200 MILLIGRAM, BID
     Route: 048
     Dates: start: 201505
  3. HYDROXYCHLOROQUINE [Concomitant]
     Active Substance: HYDROXYCHLOROQUINE
     Indication: Lyme disease
     Dosage: UNK
     Route: 065
  4. HYDROXYCHLOROQUINE [Concomitant]
     Active Substance: HYDROXYCHLOROQUINE
     Dosage: UNK
     Route: 065
  5. HYDROXYCHLOROQUINE [Concomitant]
     Active Substance: HYDROXYCHLOROQUINE
     Dosage: UNK
     Route: 065
     Dates: start: 202008
  6. HYDROXYCHLOROQUINE [Concomitant]
     Active Substance: HYDROXYCHLOROQUINE
     Dosage: 200 MILLIGRAM, BID
     Route: 048
     Dates: start: 202103
  7. NYSTATIN [Concomitant]
     Active Substance: NYSTATIN
     Indication: Lyme disease
     Dosage: UNK
     Route: 065
  8. NYSTATIN [Concomitant]
     Active Substance: NYSTATIN
     Dosage: UNK
     Route: 065
  9. NYSTATIN [Concomitant]
     Active Substance: NYSTATIN
     Dosage: UNK
     Route: 065
  10. NYSTATIN [Concomitant]
     Active Substance: NYSTATIN
     Dosage: 50000 INTERNATIONAL UNIT, BID
     Route: 065
  11. MALARONE [Concomitant]
     Active Substance: ATOVAQUONE\PROGUANIL HYDROCHLORIDE
     Indication: Lyme disease
     Dosage: UNK
     Route: 065
  12. MALARONE [Concomitant]
     Active Substance: ATOVAQUONE\PROGUANIL HYDROCHLORIDE
     Dosage: UNK
     Route: 065
  13. MALARONE [Concomitant]
     Active Substance: ATOVAQUONE\PROGUANIL HYDROCHLORIDE
     Dosage: 2 DOSAGE FORM, BID
     Route: 048
     Dates: start: 201505
  14. MALARONE [Concomitant]
     Active Substance: ATOVAQUONE\PROGUANIL HYDROCHLORIDE
     Dosage: UNK
     Route: 065
     Dates: start: 2020
  15. MALARONE [Concomitant]
     Active Substance: ATOVAQUONE\PROGUANIL HYDROCHLORIDE
     Dosage: UNK
     Route: 065
     Dates: start: 202103, end: 202104
  16. HERBALS [Concomitant]
     Active Substance: HERBALS
     Indication: Lyme disease
     Dosage: UNK
     Route: 065
  17. HERBALS [Concomitant]
     Active Substance: HERBALS
     Dosage: 30 DROP, BID (30 DROPS TWICE A DAY)
     Route: 065
     Dates: start: 201505
  18. HERBALS [Concomitant]
     Active Substance: HERBALS
     Dosage: UNK
     Route: 065
     Dates: start: 202104
  19. NALTREXONE [Concomitant]
     Active Substance: NALTREXONE
     Indication: Lyme disease
     Dosage: UNK
     Route: 065
  20. METHYLCOBALAMIN [Concomitant]
     Active Substance: METHYLCOBALAMIN
     Indication: Lyme disease
     Dosage: UNK
     Route: 065

REACTIONS (1)
  - Jarisch-Herxheimer reaction [Unknown]

NARRATIVE: CASE EVENT DATE: 20150101
